FAERS Safety Report 11828609 (Version 1)
Quarter: 2015Q4

REPORT INFORMATION
  Report Type: Spontaneous
  Country: FI (occurrence: FI)
  Receive Date: 20151211
  Receipt Date: 20151211
  Transmission Date: 20160305
  Serious: Yes (Hospitalization)
  Sender: FDA-Public Use
  Company Number: FI-PFIZER INC-2015431976

PATIENT

DRUGS (2)
  1. DUROGESIC [Interacting]
     Active Substance: FENTANYL
     Dosage: 50 UG, UNK
     Dates: start: 2012
  2. DIFLUCAN [Suspect]
     Active Substance: FLUCONAZOLE
     Indication: ORAL CANDIDIASIS
     Dosage: 100 MG, 2X/DAY
     Dates: start: 2012

REACTIONS (2)
  - Drug interaction [Recovered/Resolved]
  - Dyspnoea [Recovered/Resolved]
